FAERS Safety Report 23517248 (Version 1)
Quarter: 2024Q1

REPORT INFORMATION
  Report Type: Spontaneous
  Country: US (occurrence: None)
  Receive Date: 20240212
  Receipt Date: 20240212
  Transmission Date: 20240410
  Serious: Yes (Hospitalization)
  Sender: FDA-Public Use
  Company Number: None

PATIENT
  Age: 66 Year
  Sex: Male

DRUGS (2)
  1. CAPECITABINE [Suspect]
     Active Substance: CAPECITABINE
     Indication: Bladder cancer
     Dosage: OTHER FREQUENCY : BID D1-14//21D CYC;?2 TIMES A DAY OF DAYS 1-14 OF EACH 21 DAY CYCLE
     Route: 048
     Dates: start: 202310
  2. CAPECITABINE [Suspect]
     Active Substance: CAPECITABINE
     Indication: Bladder cancer
     Dosage: OTHER FREQUENCY : BID D1-14//21D CYC;?2 TIMES A DAY OF DAYS 1-14 OF EACH 21 DAY CYCLE
     Route: 048
     Dates: start: 202310

REACTIONS (5)
  - Diarrhoea [None]
  - Vomiting [None]
  - Decreased appetite [None]
  - Therapy change [None]
  - Acute kidney injury [None]

NARRATIVE: CASE EVENT DATE: 20231201
